FAERS Safety Report 19089959 (Version 2)
Quarter: 2021Q2

REPORT INFORMATION
  Report Type: Report from Study
  Country: IN (occurrence: IN)
  Receive Date: 20210404
  Receipt Date: 20210518
  Transmission Date: 20210717
  Serious: Yes (Death, Other)
  Sender: FDA-Public Use
  Company Number: NVSC2021IN073127

PATIENT
  Age: 66 Year
  Sex: Female

DRUGS (1)
  1. TRAVATAN [Suspect]
     Active Substance: TRAVOPROST
     Indication: GLAUCOMA
     Dosage: QD
     Route: 047
     Dates: start: 20200325

REACTIONS (1)
  - Throat cancer [Fatal]

NARRATIVE: CASE EVENT DATE: 20210201
